FAERS Safety Report 9637980 (Version 2)
Quarter: 2013Q4

REPORT INFORMATION
  Report Type: Spontaneous
  Country: US (occurrence: US)
  Receive Date: 20131022
  Receipt Date: 20131022
  Transmission Date: 20140711
  Serious: Yes (Other)
  Sender: FDA-Public Use
  Company Number: US-ASTRAZENECA-2000UW04070

PATIENT
  Age: 65 Year
  Sex: Female
  Weight: 66.7 kg

DRUGS (11)
  1. ARIMIDEX [Suspect]
     Indication: BREAST CANCER RECURRENT
     Route: 048
     Dates: start: 2012
  2. LISINOPRIL [Suspect]
     Indication: HYPERTENSION
     Route: 048
     Dates: start: 2008
  3. TAMOXIFEN [Suspect]
     Indication: BREAST CANCER
     Route: 048
     Dates: start: 200003
  4. TAMOXIFEN [Suspect]
     Indication: BREAST CANCER
     Route: 048
     Dates: start: 2001, end: 2006
  5. ZOLOFT [Concomitant]
     Indication: ILL-DEFINED DISORDER
  6. COQ10 [Concomitant]
     Indication: BLOOD CHOLESTEROL INCREASED
  7. VITAMIN C [Concomitant]
     Indication: SUPPLEMENTATION THERAPY
  8. HAWAIIANXANASTAN [Concomitant]
     Indication: SUPPLEMENTATION THERAPY
  9. VITAMIN D [Concomitant]
     Indication: SUPPLEMENTATION THERAPY
  10. EXTAVIA [Concomitant]
     Indication: BONE DENSITY ABNORMAL
     Dosage: MONTH
  11. SIMVASTATIN [Concomitant]

REACTIONS (14)
  - Metastases to bone [Unknown]
  - Breast cancer recurrent [Unknown]
  - Hypertension [Unknown]
  - Back pain [Unknown]
  - Mood swings [Unknown]
  - Anxiety [Unknown]
  - Sciatica [Unknown]
  - Nervous system disorder [Unknown]
  - Arthralgia [Unknown]
  - Arthralgia [Unknown]
  - Myalgia [Unknown]
  - Blood cholesterol increased [Unknown]
  - Weight increased [Not Recovered/Not Resolved]
  - Headache [Not Recovered/Not Resolved]
